FAERS Safety Report 6745671-X (Version None)
Quarter: 2010Q2

REPORT INFORMATION
  Report Type: 
  Country: None (occurrence: None)
  Receive Date: 20100528
  Receipt Date: 20100518
  Transmission Date: 20101027
  Serious: No
  Sender: FDA-Public Use
  Company Number: JP-NOVOPROD-308487

PATIENT
  Age: 84 Year
  Sex: Female
  Weight: 54 kg

DRUGS (13)
  1. NOVORAPID 30 MIX CHU FLEXPEN [Suspect]
     Indication: TYPE 2 DIABETES MELLITUS
     Dosage: 24-10U/MORNING-EVENING UNK, QD
     Route: 058
     Dates: start: 20100329
  2. NOVORAPID 30 MIX CHU FLEXPEN [Suspect]
     Dosage: 20-6 U, QD
     Route: 058
     Dates: start: 20100404, end: 20100415
  3. NOVORAPID 30 MIX CHU FLEXPEN [Suspect]
     Dosage: UNK
  4. CANDESARTAN CILEXETIL [Concomitant]
     Dosage: 8 MG, QD
     Route: 048
  5. ALFAROL [Concomitant]
     Dosage: 0.25 UG, QD
     Route: 048
     Dates: start: 19990618
  6. LASIX [Concomitant]
     Dosage: 80 MG, QD
     Route: 048
     Dates: start: 20080420
  7. LIVALO [Concomitant]
     Dosage: 1 MG, QD
     Route: 048
     Dates: start: 20060204
  8. MERCAZOLE [Concomitant]
     Dosage: 25 MG, QD
     Route: 048
     Dates: start: 20080420
  9. DORNER [Concomitant]
     Dosage: 120 UG, QD
     Route: 048
     Dates: start: 20010310
  10. MUCOSTA [Concomitant]
     Dosage: 300 MG, QD
     Route: 048
     Dates: start: 20041028
  11. BASEN [Concomitant]
     Dosage: 0.9 MG, QD
     Route: 048
     Dates: start: 20010310
  12. KINEDAK [Concomitant]
     Dosage: 150 MG, QD
     Route: 048
     Dates: start: 20010310
  13. ACTOS [Concomitant]
     Dosage: 22.5 MG, QD
     Route: 048
     Dates: start: 20061104, end: 20100415

REACTIONS (3)
  - ANTI-INSULIN ANTIBODY POSITIVE [None]
  - BLOOD GLUCOSE FLUCTUATION [None]
  - HYPOGLYCAEMIA [None]
